FAERS Safety Report 10854239 (Version 1)
Quarter: 2015Q1

REPORT INFORMATION
  Report Type: Spontaneous
  Country: US (occurrence: None)
  Receive Date: 20150218
  Receipt Date: 20150218
  Transmission Date: 20150721
  Serious: Yes (Disabling)
  Sender: FDA-Public Use
  Company Number: None

PATIENT
  Age: 50 Year
  Sex: Female
  Weight: 105.24 kg

DRUGS (1)
  1. AZITHROMYCIN [Suspect]
     Active Substance: AZITHROMYCIN ANHYDROUS
     Indication: BRONCHITIS
     Dosage: I PILL, ONCE DAILY, TAKEN BY MOUTH
     Route: 048
     Dates: start: 20150202, end: 20150206

REACTIONS (1)
  - Hypoacusis [None]

NARRATIVE: CASE EVENT DATE: 20150204
